FAERS Safety Report 25952382 (Version 1)
Quarter: 2025Q4

REPORT INFORMATION
  Report Type: Other
  Country: EU (occurrence: EU)
  Receive Date: 20251023
  Receipt Date: 20251023
  Transmission Date: 20260118
  Serious: Yes (Other)
  Sender: Steriscience PTE
  Company Number: None

PATIENT
  Age: 93 Year
  Sex: Female

DRUGS (3)
  1. MEROPENEM [Interacting]
     Active Substance: MEROPENEM
     Indication: Perineal abscess
     Dosage: UNK
     Route: 042
     Dates: start: 20250504, end: 20250506
  2. ERTAPENEM SODIUM [Interacting]
     Active Substance: ERTAPENEM SODIUM
     Indication: Perineal abscess
     Dosage: 500 MILLIGRAM, QD
     Route: 042
     Dates: start: 20250509, end: 20250510
  3. CEFOTAXIME SODIUM [Interacting]
     Active Substance: CEFOTAXIME SODIUM
     Indication: Perineal abscess
     Route: 042
     Dates: start: 20250510, end: 20250625

REACTIONS (1)
  - Pseudomembranous colitis [Unknown]

NARRATIVE: CASE EVENT DATE: 20250623
